FAERS Safety Report 18999532 (Version 1)
Quarter: 2021Q1

REPORT INFORMATION
  Report Type: Spontaneous
  Country: CO (occurrence: CO)
  Receive Date: 20210311
  Receipt Date: 20210311
  Transmission Date: 20210420
  Serious: Yes (Other)
  Sender: FDA-Public Use
  Company Number: CO-BIOMARINAP-CO-2021-135440

PATIENT
  Age: 22 Year
  Sex: Female
  Weight: 22 kg

DRUGS (2)
  1. NAGLAZYME [Suspect]
     Active Substance: GALSULFASE
     Indication: MUCOPOLYSACCHARIDOSIS VI
     Dosage: 20 MILLIGRAM, QW
     Route: 042
     Dates: start: 20171128
  2. ENALAPRIL [Concomitant]
     Active Substance: ENALAPRIL
     Indication: PRODUCT USED FOR UNKNOWN INDICATION
     Dosage: 1/4 TABLET, BID

REACTIONS (4)
  - Skin lesion [Unknown]
  - Pain [Unknown]
  - Lumbar spinal stenosis [Unknown]
  - Fungal skin infection [Unknown]

NARRATIVE: CASE EVENT DATE: 2020
